FAERS Safety Report 7561778-1 (Version None)
Quarter: 2011Q2

REPORT INFORMATION
  Report Type: 
  Country: None (occurrence: None)
  Receive Date: 20110621
  Receipt Date: 20110613
  Transmission Date: 20111010
  Serious: Yes (Other)
  Sender: FDA-Public Use
  Company Number: MX-B.I. PHARMACEUTICALS,INC./RIDGEFIELD-2011-MX-00152MX

PATIENT
  Age: 38 Year
  Sex: Male
  Weight: 75 kg

DRUGS (3)
  1. DABIGATRAN ETEXILATE [Suspect]
     Indication: THROMBOSIS PROPHYLAXIS
     Dosage: 220 MG
     Route: 048
     Dates: start: 20110530
  2. DANZEN [Concomitant]
     Indication: ANTIBIOTIC THERAPY
     Dosage: 30 MG
     Route: 048
  3. CELEBREX [Concomitant]
     Indication: ANTIBIOTIC THERAPY
     Dosage: 200 MG
     Route: 048

REACTIONS (2)
  - PYREXIA [None]
  - HEPATITIS CHOLESTATIC [None]
